FAERS Safety Report 6508085-3 (Version None)
Quarter: 2009Q4

REPORT INFORMATION
  Report Type: 
  Country: None (occurrence: None)
  Receive Date: 20091221
  Receipt Date: 20091217
  Transmission Date: 20100525
  Serious: Yes (Hospitalization, Other)
  Sender: FDA-Public Use
  Company Number: HQWYE214508MAR06

PATIENT
  Sex: Female
  Weight: 59.02 kg

DRUGS (2)
  1. PREMPRO [Suspect]
  2. ESTRADIOL [Suspect]

REACTIONS (1)
  - BREAST CANCER METASTATIC [None]
